FAERS Safety Report 7801957-9 (Version None)
Quarter: 2011Q4

REPORT INFORMATION
  Report Type: 
  Country: None (occurrence: None)
  Receive Date: 20111007
  Receipt Date: 20111007
  Transmission Date: 20120403
  Serious: Yes (Other)
  Sender: FDA-Public Use
  Company Number: None

PATIENT
  Age: 29 Year
  Sex: Female
  Weight: 68.038 kg

DRUGS (1)
  1. WELLBUTRIN XL [Suspect]
     Indication: FATIGUE
     Dosage: 1 TABLET
     Route: 048
     Dates: start: 20110831, end: 20110930

REACTIONS (7)
  - PYREXIA [None]
  - LYMPHADENOPATHY [None]
  - AURICULAR SWELLING [None]
  - PRURITUS [None]
  - SKIN SWELLING [None]
  - URTICARIA [None]
  - OEDEMA PERIPHERAL [None]
